FAERS Safety Report 4701558-5 (Version None)
Quarter: 2005Q2

REPORT INFORMATION
  Report Type: 
  Country: None (occurrence: None)
  Receive Date: 20050628
  Receipt Date: 20050623
  Transmission Date: 20051028
  Serious: Yes (Hospitalization)
  Sender: FDA-Public Use
  Company Number: 2005SE03680

PATIENT
  Sex: Female

DRUGS (2)
  1. BLOPRESS TABLETS 4 [Suspect]
     Indication: HYPERTENSION
     Route: 048
     Dates: start: 20050601, end: 20050601
  2. TOWARAT [Concomitant]
     Indication: HYPERTENSION
     Route: 048

REACTIONS (1)
  - HYPOTENSION [None]
